FAERS Safety Report 10762097 (Version 1)
Quarter: 2015Q1

REPORT INFORMATION
  Report Type: Spontaneous
  Country: US (occurrence: None)
  Receive Date: 20150128
  Receipt Date: 20150128
  Transmission Date: 20150721
  Serious: Yes (Hospitalization)
  Sender: FDA-Public Use
  Company Number: 1368547

PATIENT
  Sex: Male

DRUGS (3)
  1. RITUXAN [Suspect]
     Active Substance: RITUXIMAB
     Indication: DIFFUSE LARGE B-CELL LYMPHOMA
     Dosage: INFUSION RATE WAS STARTED AT 50 MG/HOUR AND THEN ESCALATED TO 100 MG/HOUR
     Route: 042
     Dates: start: 20131012
  2. LOVENOX [Concomitant]
     Active Substance: ENOXAPARIN SODIUM
  3. TYLENOL [Concomitant]
     Active Substance: ACETAMINOPHEN

REACTIONS (5)
  - Headache [None]
  - Pyrexia [None]
  - Cerebral haemorrhage [None]
  - Cerebrovascular accident [None]
  - Chills [None]
